FAERS Safety Report 11189393 (Version 2)
Quarter: 2015Q2

REPORT INFORMATION
  Report Type: Spontaneous
  Country: BR (occurrence: BR)
  Receive Date: 20150615
  Receipt Date: 20150625
  Transmission Date: 20150821
  Serious: Yes (Other)
  Sender: FDA-Public Use
  Company Number: BR-PFIZER INC-2013273433

PATIENT
  Age: 62 Year
  Sex: Female
  Weight: 44 kg

DRUGS (4)
  1. XALATAN [Suspect]
     Active Substance: LATANOPROST
     Dosage: 1 DROP IN LEFT EYE, 1X/DAY
     Route: 047
     Dates: start: 20150512
  2. XALATAN [Suspect]
     Active Substance: LATANOPROST
     Indication: GLAUCOMA
     Dosage: 1 DROP IN EACH EYE 1X/DAY (AT NIGHT)
     Route: 047
     Dates: start: 2013, end: 20150512
  3. LEVOID [Concomitant]
     Active Substance: LEVOTHYROXINE
     Indication: THYROID FUNCTION TEST ABNORMAL
     Dosage: ONE TABLET (^38 MG^), 1X/DAY
  4. COSOPT [Concomitant]
     Active Substance: DORZOLAMIDE HYDROCHLORIDE\TIMOLOL MALEATE
     Indication: GLAUCOMA
     Dosage: 1 DROP IN EACH EYE 2X/DAY
     Route: 047
     Dates: start: 201110

REACTIONS (8)
  - Blepharal pigmentation [Recovered/Resolved]
  - Skin exfoliation [Recovered/Resolved]
  - Dry eye [Recovered/Resolved]
  - Eye irritation [Recovered/Resolved]
  - Glaucoma [Recovering/Resolving]
  - Eye irritation [Recovered/Resolved]
  - Gingival bleeding [Recovered/Resolved]
  - Epistaxis [Recovered/Resolved]

NARRATIVE: CASE EVENT DATE: 2013
